FAERS Safety Report 5426634-3 (Version None)
Quarter: 2007Q3

REPORT INFORMATION
  Report Type: 
  Country: None (occurrence: None)
  Receive Date: 20070731
  Receipt Date: 20070530
  Transmission Date: 20080115
  Serious: No
  Sender: FDA-Public Use
  Company Number: 2006PV014595

PATIENT
  Age: 61 Year
  Sex: Female
  Weight: 86.2 kg

DRUGS (3)
  1. EXENATIDE(EXENATIDE) PEN,DISPOSABLE [Suspect]
     Indication: TYPE 2 DIABETES MELLITUS
     Dosage: 10 UG, 2/D, SUBCUTANEOUS, 5 UG, 2/D, SUBCUTANEOUS
     Route: 058
     Dates: start: 20060401, end: 20060501
  2. EXENATIDE(EXENATIDE) PEN,DISPOSABLE [Suspect]
     Indication: TYPE 2 DIABETES MELLITUS
     Dosage: 10 UG, 2/D, SUBCUTANEOUS, 5 UG, 2/D, SUBCUTANEOUS
     Route: 058
     Dates: start: 20060501
  3. EXANATIDE 10MCG PEN, DISPOSABLE DEVICE (EXENATIDE PEN (10MCG)) PEN,DIS [Concomitant]

REACTIONS (6)
  - INJECTION SITE HAEMORRHAGE [None]
  - INJECTION SITE PAIN [None]
  - INJECTION SITE RASH [None]
  - MOOD ALTERED [None]
  - NERVOUSNESS [None]
  - SOMNOLENCE [None]
